FAERS Safety Report 15160744 (Version 2)
Quarter: 2019Q2

REPORT INFORMATION
  Report Type: Report from Study
  Country: US (occurrence: US)
  Receive Date: 20180718
  Receipt Date: 20190402
  Transmission Date: 20190711
  Serious: Yes (Hospitalization)
  Sender: FDA-Public Use
  Company Number: US-CELGENEUS-USA-20180700806

PATIENT
  Age: 60 Year
  Sex: Female
  Weight: 59.4 kg

DRUGS (8)
  1. ROMIDEPSIN. [Suspect]
     Active Substance: ROMIDEPSIN
     Indication: BONE MARROW CONDITIONING REGIMEN
     Dosage: 3.3 MILLIGRAM
     Route: 041
     Dates: start: 20180220, end: 20180223
  2. FLUDARABINE [Concomitant]
     Active Substance: FLUDARABINE PHOSPHATE
     Indication: PRODUCT USED FOR UNKNOWN INDICATION
     Route: 065
     Dates: start: 20180220, end: 20180223
  3. ROMIDEPSIN. [Suspect]
     Active Substance: ROMIDEPSIN
     Indication: PERIPHERAL T-CELL LYMPHOMA UNSPECIFIED
  4. BUSULFAN. [Concomitant]
     Active Substance: BUSULFAN
     Indication: PRODUCT USED FOR UNKNOWN INDICATION
     Route: 065
     Dates: start: 20180220, end: 20180223
  5. ANTI-THYMOCYTE GLOBULIN [Concomitant]
     Active Substance: THYMOCYTE IMMUNE GLOBULIN NOS
     Indication: PRODUCT USED FOR UNKNOWN INDICATION
     Route: 065
     Dates: start: 20180223, end: 20180225
  6. MYCOPHENOLATE MOFETIL. [Concomitant]
     Active Substance: MYCOPHENOLATE MOFETIL
     Indication: GRAFT VERSUS HOST DISEASE
     Route: 065
  7. AMICAR [Concomitant]
     Active Substance: AMINOCAPROIC ACID
     Indication: PRODUCT USED FOR UNKNOWN INDICATION
     Route: 065
  8. SIROLIMUS. [Concomitant]
     Active Substance: SIROLIMUS
     Indication: GRAFT VERSUS HOST DISEASE
     Route: 065

REACTIONS (5)
  - Pneumonia klebsiella [Unknown]
  - Anaemia [Unknown]
  - Staphylococcal infection [Unknown]
  - Platelet count decreased [Unknown]
  - Fall [Unknown]

NARRATIVE: CASE EVENT DATE: 20180629
